FAERS Safety Report 7212834-9 (Version None)
Quarter: 2011Q1

REPORT INFORMATION
  Report Type: 
  Country: None (occurrence: None)
  Receive Date: 20110106
  Receipt Date: 20101228
  Transmission Date: 20110831
  Serious: Yes (Death, Hospitalization, Other)
  Sender: FDA-Public Use
  Company Number: DE-ELI_LILLY_AND_COMPANY-DE201009000012

PATIENT
  Age: 66 Year
  Sex: Male
  Weight: 79 kg

DRUGS (15)
  1. TORASEMID [Concomitant]
     Dosage: UNK, WHEN NEEDED
  2. BERODUAL [Concomitant]
     Route: 055
  3. LANTUS [Concomitant]
  4. CALCIUM [Concomitant]
  5. DEKRISTOL [Concomitant]
     Dosage: UNK, ONE EVERY 3 WEEKS
  6. FORTEO [Suspect]
     Indication: OSTEOPOROSIS
     Dosage: UNK, UNKNOWN
     Route: 058
     Dates: start: 20100503
  7. PREDNISOLONE [Concomitant]
  8. PANTOPRAZOLE [Concomitant]
  9. RAMIPRIL [Concomitant]
  10. VIANI [Concomitant]
  11. THEOPHYLLINE [Concomitant]
  12. MATRIFEN [Concomitant]
  13. ONBREZ [Concomitant]
  14. NEBIVOLOL [Concomitant]
  15. SPIRIVA [Concomitant]

REACTIONS (5)
  - PAIN [None]
  - LUNG NEOPLASM MALIGNANT [None]
  - METASTASES TO PHARYNX [None]
  - CERVICAL VERTEBRAL FRACTURE [None]
  - DEATH [None]
